APPROVED DRUG PRODUCT: LTA II KIT
Active Ingredient: LIDOCAINE HYDROCHLORIDE
Strength: 4%
Dosage Form/Route: SOLUTION;TOPICAL
Application: A088542 | Product #001
Applicant: HOSPIRA INC
Approved: Jul 31, 1984 | RLD: No | RS: No | Type: DISCN